FAERS Safety Report 10022115 (Version 1)
Quarter: 2014Q1

REPORT INFORMATION
  Report Type: Spontaneous
  Country: US (occurrence: US)
  Receive Date: 20140319
  Receipt Date: 20140319
  Transmission Date: 20141002
  Serious: Yes (Other)
  Sender: FDA-Public Use
  Company Number: US-GLAXOSMITHKLINE-A1065473A

PATIENT
  Sex: Male

DRUGS (9)
  1. VENTOLIN [Suspect]
     Indication: PRODUCT USED FOR UNKNOWN INDICATION
     Route: 065
  2. ROCEPHIN [Suspect]
     Indication: PRODUCT USED FOR UNKNOWN INDICATION
     Dosage: 1G UNKNOWN
     Route: 065
  3. TRAMADOL HCL [Suspect]
     Indication: PRODUCT USED FOR UNKNOWN INDICATION
     Route: 048
  4. GLUCOPHAGE [Suspect]
     Indication: PRODUCT USED FOR UNKNOWN INDICATION
     Dosage: 500MG TWICE PER DAY
     Route: 065
  5. LEVOTHYROXINE SODIUM [Suspect]
     Indication: PRODUCT USED FOR UNKNOWN INDICATION
     Dosage: 25MCG IN THE MORNING
     Route: 065
  6. ASPIRIN EC [Suspect]
     Indication: PRODUCT USED FOR UNKNOWN INDICATION
     Dosage: 81MG PER DAY
     Route: 065
  7. ADVAIR DISKUS [Suspect]
     Indication: PRODUCT USED FOR UNKNOWN INDICATION
     Dosage: 1PUFF TWICE PER DAY
     Route: 065
  8. PROMETHAZINE HCL [Suspect]
     Indication: PRODUCT USED FOR UNKNOWN INDICATION
     Dosage: 25MG SEE DOSAGE TEXT
     Route: 065
  9. LISINOPRIL [Suspect]
     Indication: PRODUCT USED FOR UNKNOWN INDICATION
     Dosage: 2.5MG PER DAY
     Route: 065

REACTIONS (14)
  - Chronic obstructive pulmonary disease [Unknown]
  - Physical examination [Unknown]
  - Therapeutic procedure [Unknown]
  - Tobacco abuse [Unknown]
  - Musculoskeletal pain [Unknown]
  - Hypothyroidism [Unknown]
  - Type 2 diabetes mellitus [Unknown]
  - Hypertriglyceridaemia [Unknown]
  - Obesity [Unknown]
  - Arthralgia [Unknown]
  - Skin lesion [Unknown]
  - Rectal haemorrhage [Unknown]
  - Diverticulitis [Unknown]
  - Nicotine dependence [Unknown]
